FAERS Safety Report 8465173-2 (Version None)
Quarter: 2012Q2

REPORT INFORMATION
  Report Type: 
  Country: None (occurrence: None)
  Receive Date: 20120619
  Receipt Date: 20120605
  Transmission Date: 20120825
  Serious: Yes (Hospitalization)
  Sender: FDA-Public Use
  Company Number: DSJ-2012-10243

PATIENT
  Age: 58 Year
  Sex: Female

DRUGS (4)
  1. ATENOLOL AND CHLORTHALIDONE [Suspect]
     Indication: HYPERTENSION
     Dosage: PER ORAL
     Route: 048
     Dates: start: 20090101, end: 20110401
  2. BENICAR [Suspect]
     Indication: HYPERTENSION
     Dosage: 20 MG (20 MG, 1 IN 1 D), PER ORAL, 40 MG (40 MG, 1 IN 1 D), PER ORAL, 80 MG (80 MG, 1 IN 1 D), PER O
     Route: 048
     Dates: start: 20120605, end: 20120605
  3. BENICAR [Suspect]
     Indication: HYPERTENSION
     Dosage: 20 MG (20 MG, 1 IN 1 D), PER ORAL, 40 MG (40 MG, 1 IN 1 D), PER ORAL, 80 MG (80 MG, 1 IN 1 D), PER O
     Route: 048
     Dates: start: 20090101, end: 20120603
  4. BENICAR [Suspect]
     Indication: HYPERTENSION
     Dosage: 20 MG (20 MG, 1 IN 1 D), PER ORAL, 40 MG (40 MG, 1 IN 1 D), PER ORAL, 80 MG (80 MG, 1 IN 1 D), PER O
     Route: 048
     Dates: start: 20120604, end: 20120604

REACTIONS (7)
  - OVERDOSE [None]
  - ROAD TRAFFIC ACCIDENT [None]
  - RIB FRACTURE [None]
  - DRUG ADMINISTRATION ERROR [None]
  - DRUG INEFFECTIVE [None]
  - HAEMOTHORAX [None]
  - INTERVERTEBRAL DISC PROTRUSION [None]
